FAERS Safety Report 23540966 (Version 1)
Quarter: 2024Q1

REPORT INFORMATION
  Report Type: Spontaneous
  Country: US (occurrence: US)
  Receive Date: 20240219
  Receipt Date: 20240219
  Transmission Date: 20240409
  Serious: No
  Sender: FDA-Public Use
  Company Number: US-FreseniusKabi-FK202402642

PATIENT
  Sex: Female

DRUGS (1)
  1. ADALIMUMAB-AACF [Suspect]
     Active Substance: ADALIMUMAB-AACF
     Indication: Psoriatic arthropathy
     Dosage: INJECTION?ROA: IN THE FATTY TISSUE OF THE ABDOMEN OR THIGH (NOT IN THE MUSCLES)
     Dates: start: 20240201

REACTIONS (2)
  - Injection site pain [Recovered/Resolved]
  - Product dose omission in error [None]

NARRATIVE: CASE EVENT DATE: 20240201
